FAERS Safety Report 4591096-5 (Version None)
Quarter: 2005Q1

REPORT INFORMATION
  Report Type: 
  Country: None (occurrence: None)
  Receive Date: 20050218
  Receipt Date: 20050202
  Transmission Date: 20050727
  Serious: Yes (Hospitalization)
  Sender: FDA-Public Use
  Company Number: DSA_25857_2005

PATIENT
  Age: 91 Year
  Sex: Female

DRUGS (6)
  1. ENALAPRIL MALEATE [Suspect]
     Indication: HYPERTENSION
     Dosage: 5 MG BID PO
     Route: 048
     Dates: end: 20050114
  2. ASTRA (OMEPRAZOLE) [Suspect]
     Dosage: 20 MG Q DAY PO
     Route: 048
     Dates: end: 20050114
  3. TRIAMTERENE AND HYDROCHLOROTHAIZID^HARRIS^ [Concomitant]
  4. ALPRAZOLAM [Concomitant]
  5. ISOSORBIDE MONONITRATE [Concomitant]
  6. NICERGOLINE [Concomitant]

REACTIONS (1)
  - PEMPHIGOID [None]
